FAERS Safety Report 17930180 (Version 1)
Quarter: 2020Q2

REPORT INFORMATION
  Report Type: Spontaneous
  Country: US (occurrence: US)
  Receive Date: 20200623
  Receipt Date: 20200623
  Transmission Date: 20200714
  Serious: No
  Sender: FDA-Public Use
  Company Number: US-BEH-2020118853

PATIENT
  Age: 43 Year
  Sex: Female

DRUGS (14)
  1. DYMISTA [Concomitant]
     Active Substance: AZELASTINE HYDROCHLORIDE\FLUTICASONE PROPIONATE
  2. LISINOPRIL. [Concomitant]
     Active Substance: LISINOPRIL
  3. CEFDINIR. [Concomitant]
     Active Substance: CEFDINIR
  4. PREVALITE [Concomitant]
     Active Substance: CHOLESTYRAMINE
  5. LOPERAMIDE [Concomitant]
     Active Substance: LOPERAMIDE
  6. METOPROLOL SUCCINATE. [Concomitant]
     Active Substance: METOPROLOL SUCCINATE
  7. ENOXAPARIN [Concomitant]
     Active Substance: ENOXAPARIN
  8. HYDROCHLOROTH [Concomitant]
     Active Substance: HYDROCHLOROTHIAZIDE
  9. PREDNISONE. [Concomitant]
     Active Substance: PREDNISONE
  10. AZELASTINE HYDROCHLORIDE;FLUTICASONE PROPIONATE [Concomitant]
     Active Substance: AZELASTINE HYDROCHLORIDE\FLUTICASONE PROPIONATE
  11. HIZENTRA [Suspect]
     Active Substance: HUMAN IMMUNOGLOBULIN G
     Indication: IMMUNODEFICIENCY
     Dosage: 10 GRAM, QW
     Route: 058
     Dates: start: 20180515
  12. LIDOCAIN [LIDOCAINE] [Concomitant]
     Active Substance: LIDOCAINE
  13. METOPROLOL. [Concomitant]
     Active Substance: METOPROLOL
  14. TRAZODONE [Concomitant]
     Active Substance: TRAZODONE HYDROCHLORIDE

REACTIONS (1)
  - Infusion site pain [Not Recovered/Not Resolved]
